FAERS Safety Report 16288868 (Version 1)
Quarter: 2019Q2

REPORT INFORMATION
  Report Type: Spontaneous
  Country: US (occurrence: US)
  Receive Date: 20190402
  Receipt Date: 20190402
  Transmission Date: 20190711
  Serious: Yes (Hospitalization)
  Sender: FDA-Public Use
  Company Number: None

PATIENT
  Age: 72 Year
  Sex: Male
  Weight: 124.7 kg

DRUGS (4)
  1. CASODEX [Suspect]
     Active Substance: BICALUTAMIDE
     Dates: end: 20160830
  2. PLAVIX [Concomitant]
     Active Substance: CLOPIDOGREL BISULFATE
  3. COUMADIN [Concomitant]
     Active Substance: WARFARIN SODIUM
  4. LEUPROLIDE ACETATE. [Suspect]
     Active Substance: LEUPROLIDE ACETATE
     Dates: end: 20160802

REACTIONS (13)
  - International normalised ratio increased [None]
  - Blood loss anaemia [None]
  - Radiation prostatitis [None]
  - Blood potassium decreased [None]
  - Rectal haemorrhage [None]
  - Rectal ulcer [None]
  - Vomiting [None]
  - Diarrhoea [None]
  - Nausea [None]
  - Blood urea increased [None]
  - Anaemia [None]
  - Gastrointestinal mucosal disorder [None]
  - Blood creatinine increased [None]

NARRATIVE: CASE EVENT DATE: 20181218
